FAERS Safety Report 5612723-7 (Version None)
Quarter: 2008Q1

REPORT INFORMATION
  Report Type: 
  Country: None (occurrence: None)
  Receive Date: 20080204
  Receipt Date: 20080123
  Transmission Date: 20080703
  Serious: Yes (Hospitalization)
  Sender: FDA-Public Use
  Company Number: GB-ELI_LILLY_AND_COMPANY-GB200801005047

PATIENT
  Age: 55 Year
  Sex: Male
  Weight: 98 kg

DRUGS (4)
  1. CIALIS [Suspect]
     Indication: ERECTILE DYSFUNCTION
     Dosage: 20 MG, UNKNOWN
     Route: 048
     Dates: start: 20071108, end: 20080105
  2. BISOPROLOL [Concomitant]
     Indication: CARDIAC DISORDER
     Dosage: 2.5 MG, UNKNOWN
     Route: 048
     Dates: start: 20060208
  3. SIMVASTATIN [Concomitant]
     Indication: CARDIAC DISORDER
     Dosage: 20 MG, UNKNOWN
     Route: 048
     Dates: start: 20071231
  4. WARFARIN SODIUM [Concomitant]
     Indication: AORTIC VALVE REPLACEMENT
     Dosage: 3 MG, UNKNOWN
     Route: 048

REACTIONS (3)
  - ARTHRALGIA [None]
  - JOINT ADHESION [None]
  - MUSCULOSKELETAL DISCOMFORT [None]
